FAERS Safety Report 7960876-8 (Version None)
Quarter: 2011Q4

REPORT INFORMATION
  Report Type: 
  Country: None (occurrence: None)
  Receive Date: 20111121
  Receipt Date: 20110902
  Transmission Date: 20120403
  Serious: Yes (Other)
  Sender: FDA-Public Use
  Company Number: 2011-14573

PATIENT
  Sex: Female

DRUGS (1)
  1. INFED [Suspect]
     Indication: ANAEMIA
     Dosage: UNK

REACTIONS (4)
  - BRONCHOSPASM [None]
  - RASH GENERALISED [None]
  - ANAPHYLACTIC SHOCK [None]
  - HYPOTENSION [None]
